FAERS Safety Report 6828322-5 (Version None)
Quarter: 2010Q3

REPORT INFORMATION
  Report Type: 
  Country: None (occurrence: None)
  Receive Date: 20100709
  Receipt Date: 20070206
  Transmission Date: 20110219
  Serious: No
  Sender: FDA-Public Use
  Company Number: US-PFIZER INC-2007010697

PATIENT
  Sex: Female
  Weight: 61.23 kg

DRUGS (8)
  1. CHANTIX [Suspect]
     Indication: SMOKING CESSATION THERAPY
     Route: 048
  2. CITALOPRAM HYDROBROMIDE [Concomitant]
  3. ZYRTEC [Concomitant]
  4. FLONASE [Concomitant]
  5. PREMARIN [Concomitant]
  6. ZANTAC [Concomitant]
     Indication: GASTRIC DISORDER
  7. ATACAND [Concomitant]
  8. TYLENOL [Concomitant]

REACTIONS (5)
  - DIARRHOEA [None]
  - FLATULENCE [None]
  - NAUSEA [None]
  - TREMOR [None]
  - WEIGHT INCREASED [None]
